FAERS Safety Report 6973035-2 (Version None)
Quarter: 2010Q3

REPORT INFORMATION
  Report Type: 
  Country: None (occurrence: None)
  Receive Date: 20100909
  Receipt Date: 20100830
  Transmission Date: 20110219
  Serious: Yes (Hospitalization, Other)
  Sender: FDA-Public Use
  Company Number: US-PFIZER INC-2010109780

PATIENT
  Sex: Male
  Weight: 83.9 kg

DRUGS (6)
  1. LIPITOR [Suspect]
     Indication: HYPERCHOLESTEROLAEMIA
     Dosage: 20 MG, 1X/DAY
     Route: 048
  2. LIPITOR [Suspect]
     Dosage: 80 MG, 1X/DAY
     Route: 048
  3. WARFARIN SODIUM [Concomitant]
     Dosage: 5 MG, UNK
  4. LASIX [Concomitant]
     Dosage: 40 MG, UNK
  5. ACETYLSALICYLIC ACID [Concomitant]
     Dosage: 80 MG, UNK
  6. ACETAMINOPHEN [Concomitant]
     Dosage: UNK, AS NEEDED

REACTIONS (3)
  - EYE DISORDER [None]
  - HYPERTENSION [None]
  - MYOCARDIAL INFARCTION [None]
